FAERS Safety Report 5755415-6 (Version None)
Quarter: 2008Q2

REPORT INFORMATION
  Report Type: 
  Country: None (occurrence: None)
  Receive Date: 20080529
  Receipt Date: 20080529
  Transmission Date: 20081010
  Serious: Yes (Other)
  Sender: FDA-Public Use
  Company Number: None

PATIENT
  Age: 77 Year
  Sex: Female
  Weight: 56.6996 kg

DRUGS (1)
  1. DIGITEK  .25 MG  MYLAN BERT [Suspect]
     Indication: TACHYCARDIA
     Dosage: 1 DAILY PO
     Route: 048

REACTIONS (3)
  - HEART RATE IRREGULAR [None]
  - NAUSEA [None]
  - VOMITING [None]
